FAERS Safety Report 8803902 (Version 1)
Quarter: 2012Q4

REPORT INFORMATION
  Report Type: 
  Country: TR (occurrence: TR)
  Receive Date: 20120923
  Receipt Date: 20120923
  Transmission Date: 20130627
  Serious: Yes (Other)
  Sender: FDA-Public Use
  Company Number: TR-MYLANLABS-2012S1018866

PATIENT
  Age: 57 Year
  Sex: Female

DRUGS (4)
  1. TRETINOIN [Suspect]
     Indication: ACUTE PROMYELOCYTIC LEUKAEMIA
     Dosage: 45 mg/m2 per day until complete remission (PETHEMA LPA99 trial)
     Route: 048
  2. TRETINOIN [Suspect]
     Indication: ACUTE PROMYELOCYTIC LEUKAEMIA
     Dosage: 45 mg/m2 per day for 15d; started 7d after CR
     Route: 048
  3. IDARUBICIN [Concomitant]
     Indication: ACUTE PROMYELOCYTIC LEUKAEMIA
     Dosage: 12 mg/m2 on d2, 4, 6 + 8 (PETHEMA LPA99 trial)
     Route: 042
  4. IDARUBICIN [Concomitant]
     Indication: ACUTE PROMYELOCYTIC LEUKAEMIA
     Dosage: 7 mg/m2/day for 4d; started 7d after CR
     Route: 042

REACTIONS (4)
  - Dermatitis exfoliative [Recovering/Resolving]
  - Xerosis [Recovering/Resolving]
  - Hepatotoxicity [Recovered/Resolved]
  - Depression [Unknown]
